FAERS Safety Report 6502605-0 (Version None)
Quarter: 2009Q4

REPORT INFORMATION
  Report Type: 
  Country: None (occurrence: None)
  Receive Date: 20091127
  Receipt Date: 20090210
  Transmission Date: 20100525
  Serious: Yes (Other)
  Sender: FDA-Public Use
  Company Number: WAES 0902USA01619

PATIENT
  Age: 76 Year
  Sex: Female
  Weight: 83.9154 kg

DRUGS (2)
  1. FOSAMAX [Suspect]
     Indication: OSTEOPOROSIS
     Dosage: 70 MG/WKY/PO
     Route: 048
     Dates: start: 20000101, end: 20070801
  2. FOSAMAX PLUS D [Suspect]

REACTIONS (29)
  - ABASIA [None]
  - ANXIETY [None]
  - APHTHOUS STOMATITIS [None]
  - BACK PAIN [None]
  - BONE DISORDER [None]
  - BRONCHITIS [None]
  - CARPAL TUNNEL SYNDROME [None]
  - DENTAL CARIES [None]
  - DENTAL DISCOMFORT [None]
  - DEVICE FAILURE [None]
  - DRUG INTOLERANCE [None]
  - EXOSTOSIS [None]
  - FOOT DEFORMITY [None]
  - HERPES SIMPLEX [None]
  - HYPERLIPIDAEMIA [None]
  - IMPAIRED HEALING [None]
  - MOUTH ULCERATION [None]
  - NAUSEA [None]
  - ORAL DISORDER [None]
  - ORAL INFECTION [None]
  - OSTEONECROSIS [None]
  - PARAESTHESIA [None]
  - RENAL CYST [None]
  - ROTATOR CUFF SYNDROME [None]
  - STOMATITIS [None]
  - TOOTH DISORDER [None]
  - TOOTHACHE [None]
  - UPPER RESPIRATORY TRACT INFECTION [None]
  - VIRAL INFECTION [None]
